FAERS Safety Report 8202649-7 (Version None)
Quarter: 2012Q1

REPORT INFORMATION
  Report Type: 
  Country: None (occurrence: None)
  Receive Date: 20120227
  Receipt Date: 20120127
  Transmission Date: 20120608
  Serious: Yes (Other)
  Sender: FDA-Public Use
  Company Number: 341904

PATIENT
  Age: 52 Year
  Sex: Male

DRUGS (5)
  1. VICTOZA [Suspect]
     Indication: TYPE 2 DIABETES MELLITUS
     Dosage: SUBCUTANEOUS
     Route: 058
     Dates: start: 20110901, end: 20111219
  2. GLUCOTROL [Concomitant]
  3. METFORMIN HCL [Concomitant]
  4. ZESTRIL [Concomitant]
  5. ZOCOR [Concomitant]

REACTIONS (1)
  - PANCREATITIS ACUTE [None]
